FAERS Safety Report 25975786 (Version 2)
Quarter: 2025Q4

REPORT INFORMATION
  Report Type: Spontaneous
  Country: CO (occurrence: CO)
  Receive Date: 20251029
  Receipt Date: 20251103
  Transmission Date: 20260117
  Serious: Yes (Other)
  Sender: BAYER HEALTHCARE PHARMACEUTICALS INC.
  Company Number: CO-BAYER-2025A142263

PATIENT
  Sex: Male

DRUGS (1)
  1. NUBEQA [Suspect]
     Active Substance: DAROLUTAMIDE
     Indication: Product used for unknown indication
     Dosage: 1200 MG A DAY
     Dates: start: 202509

REACTIONS (6)
  - Hypoacusis [Not Recovered/Not Resolved]
  - Orchidectomy [Not Recovered/Not Resolved]
  - Scrotal infection [Not Recovered/Not Resolved]
  - Illness [Not Recovered/Not Resolved]
  - Prostatic operation [Unknown]
  - Abscess [None]

NARRATIVE: CASE EVENT DATE: 20250101
